FAERS Safety Report 24105073 (Version 1)
Quarter: 2024Q3

REPORT INFORMATION
  Report Type: Spontaneous
  Country: US (occurrence: US)
  Receive Date: 20240717
  Receipt Date: 20240717
  Transmission Date: 20241017
  Serious: Yes (Hospitalization, Other)
  Sender: MERCK
  Company Number: US-009507513-2407USA004706

PATIENT
  Sex: Male

DRUGS (1)
  1. KEYTRUDA [Suspect]
     Active Substance: PEMBROLIZUMAB
     Dosage: 300 MILLIGRAM, Q3W

REACTIONS (3)
  - Radiotherapy [Unknown]
  - Malignant neoplasm progression [Unknown]
  - Incorrect dose administered [Unknown]
